FAERS Safety Report 9490466 (Version 1)
Quarter: 2013Q3

REPORT INFORMATION
  Report Type: Spontaneous
  Country: TR (occurrence: None)
  Receive Date: 20130823
  Receipt Date: 20130823
  Transmission Date: 20140515
  Serious: Yes (Hospitalization, Disabling)
  Sender: FDA-Public Use
  Company Number: 2013P1018621

PATIENT
  Age: 73 Year
  Sex: Female

DRUGS (6)
  1. LITHIUM [Suspect]
     Indication: BIPOLAR DISORDER
  2. OLANZEPINE [Suspect]
     Indication: BIPOLAR DISORDER
  3. UNSPECIFIED ANTIBIOTICS [Suspect]
     Indication: URINARY TRACT INFECTION
  4. FLUVOXAMINE [Concomitant]
  5. DONEPEZIL [Concomitant]
  6. LEVODOPA [Concomitant]

REACTIONS (16)
  - Neurotoxicity [None]
  - Urinary tract infection [None]
  - Cognitive disorder [None]
  - Tremor [None]
  - Dysarthria [None]
  - Drug level increased [None]
  - Somnolence [None]
  - Muscle rigidity [None]
  - Myoclonus [None]
  - Faecal incontinence [None]
  - Urinary incontinence [None]
  - Ataxia [None]
  - Quadriparesis [None]
  - Toxicity to various agents [None]
  - Renal failure [None]
  - Dehydration [None]
